FAERS Safety Report 8836586 (Version 1)
Quarter: 2012Q4

REPORT INFORMATION
  Report Type: Spontaneous
  Country: SG (occurrence: None)
  Receive Date: 20121009
  Receipt Date: 20121009
  Transmission Date: 20130627
  Serious: No
  Sender: FDA-Public Use
  Company Number: 1209SGP009196

PATIENT
  Age: 3 Year
  Sex: Male

DRUGS (1)
  1. CEDAX [Suspect]
     Route: 048

REACTIONS (1)
  - Rash [None]
